FAERS Safety Report 7098094-0 (Version None)
Quarter: 2010Q4

REPORT INFORMATION
  Report Type: 
  Country: None (occurrence: None)
  Receive Date: 20101112
  Receipt Date: 20101103
  Transmission Date: 20110411
  Serious: Yes (Hospitalization)
  Sender: FDA-Public Use
  Company Number: US-ASTRAZENECA-2010SE52281

PATIENT
  Sex: Male

DRUGS (1)
  1. SEROQUEL [Suspect]
     Indication: INSOMNIA
     Route: 048

REACTIONS (11)
  - APHAGIA [None]
  - DRUG DOSE OMISSION [None]
  - EXOPHTHALMOS [None]
  - EYELID FUNCTION DISORDER [None]
  - FATIGUE [None]
  - FREQUENT BOWEL MOVEMENTS [None]
  - HEADACHE [None]
  - HYPERHIDROSIS [None]
  - TACHYCARDIA [None]
  - THYROID DISORDER [None]
  - TREMOR [None]
